FAERS Safety Report 8277921-5 (Version None)
Quarter: 2012Q2

REPORT INFORMATION
  Report Type: 
  Country: None (occurrence: None)
  Receive Date: 20120412
  Receipt Date: 20120402
  Transmission Date: 20120825
  Serious: Yes (Hospitalization)
  Sender: FDA-Public Use
  Company Number: DE-ELI_LILLY_AND_COMPANY-DE201204000556

PATIENT
  Age: 78 Year
  Sex: Female

DRUGS (5)
  1. SYMBICORT [Concomitant]
     Dosage: UNK, BID
  2. FORTEO [Suspect]
     Indication: OSTEOPOROSIS
     Dosage: UNK, QD
     Route: 058
     Dates: start: 20120303
  3. OXYCODONE HCL [Concomitant]
  4. SPIRIVA [Concomitant]
     Dosage: UNK, QD
  5. PANTOPRAZOLE [Concomitant]

REACTIONS (4)
  - SPEECH DISORDER [None]
  - DYSPNOEA [None]
  - GAIT DISTURBANCE [None]
  - ASTHMA [None]
